FAERS Safety Report 22323875 (Version 1)
Quarter: 2023Q2

REPORT INFORMATION
  Report Type: Spontaneous
  Country: US (occurrence: None)
  Receive Date: 20230512
  Receipt Date: 20230512
  Transmission Date: 20230721
  Serious: Yes (Life-Threatening)
  Sender: FDA-Public Use
  Company Number: None

PATIENT
  Age: 50 Year
  Sex: Female
  Weight: 102.15 kg

DRUGS (1)
  1. OZEMPIC [Suspect]
     Active Substance: SEMAGLUTIDE
     Dosage: FREQUENCY : WEEKLY;?
     Route: 058
     Dates: start: 20230507, end: 20230507

REACTIONS (2)
  - Anaphylactic reaction [None]
  - Post procedural complication [None]

NARRATIVE: CASE EVENT DATE: 20230507
